FAERS Safety Report 21089017 (Version 3)
Quarter: 2022Q4

REPORT INFORMATION
  Report Type: Report from Study
  Country: US (occurrence: US)
  Receive Date: 20220715
  Receipt Date: 20221102
  Transmission Date: 20230112
  Serious: Yes (Other)
  Sender: FDA-Public Use
  Company Number: US-BIOVITRUM-2022US08742

PATIENT
  Sex: Female

DRUGS (25)
  1. KINERET [Suspect]
     Active Substance: ANAKINRA
     Indication: Rheumatoid arthritis
     Dates: start: 20220708
  2. KINERET [Suspect]
     Active Substance: ANAKINRA
     Dates: start: 20220707
  3. KINERET [Suspect]
     Active Substance: ANAKINRA
     Dates: start: 20220708
  4. LASIX [Concomitant]
     Active Substance: FUROSEMIDE
  5. IRON [Concomitant]
     Active Substance: IRON
  6. HYDROCODONE [Suspect]
     Active Substance: HYDROCODONE
     Indication: Product used for unknown indication
  7. NITROGLYCERIN [Concomitant]
     Active Substance: NITROGLYCERIN
  8. ALPRAZOLAM [Concomitant]
     Active Substance: ALPRAZOLAM
  9. TELMISARTAN [Concomitant]
     Active Substance: TELMISARTAN
  10. GABAPENTIN [Concomitant]
     Active Substance: GABAPENTIN
  11. HYDROXYZINE [Concomitant]
     Active Substance: HYDROXYZINE HYDROCHLORIDE
  12. OMEPRAZOLE [Concomitant]
     Active Substance: OMEPRAZOLE
  13. PRAVASTATIN [Concomitant]
     Active Substance: PRAVASTATIN
  14. SERTRALINE [Concomitant]
     Active Substance: SERTRALINE HYDROCHLORIDE
  15. ALENDRONATE [Concomitant]
     Active Substance: ALENDRONATE SODIUM
  16. ARIPIPRAZOLE [Concomitant]
     Active Substance: ARIPIPRAZOLE
  17. ALBUTEROL [Concomitant]
     Active Substance: ALBUTEROL
  18. CYANOCOBALAMIN [Concomitant]
     Active Substance: CYANOCOBALAMIN
  19. POTASSIUM CHLORIDE [Concomitant]
     Active Substance: POTASSIUM CHLORIDE
  20. TRAZODONE [Concomitant]
     Active Substance: TRAZODONE HYDROCHLORIDE
  21. FLEXERIL [Concomitant]
     Active Substance: CYCLOBENZAPRINE HYDROCHLORIDE
  22. SINGULAIR [Concomitant]
     Active Substance: MONTELUKAST SODIUM
  23. TRAMADOL [Concomitant]
     Active Substance: TRAMADOL
  24. BROVANA [Concomitant]
     Active Substance: ARFORMOTEROL TARTRATE
  25. RANOLAZINE [Concomitant]
     Active Substance: RANOLAZINE

REACTIONS (18)
  - Autoimmune disorder [Unknown]
  - Anaemia [Unknown]
  - Rhinorrhoea [Unknown]
  - Influenza like illness [Unknown]
  - Pain [Unknown]
  - Red blood cell count decreased [Unknown]
  - Haemoglobin decreased [Unknown]
  - Haematocrit decreased [Unknown]
  - Oxygen saturation decreased [Unknown]
  - Cough [Unknown]
  - Pyrexia [Unknown]
  - Bone pain [Unknown]
  - Constipation [Unknown]
  - Cardiac murmur [Unknown]
  - Heart rate increased [Unknown]
  - Headache [Unknown]
  - Injection site pain [Unknown]
  - Therapeutic product effect decreased [Unknown]
